FAERS Safety Report 23189195 (Version 1)
Quarter: 2023Q4

REPORT INFORMATION
  Report Type: Spontaneous
  Country: CN (occurrence: CN)
  Receive Date: 20231115
  Receipt Date: 20231115
  Transmission Date: 20240109
  Serious: Yes (Other)
  Sender: FDA-Public Use
  Company Number: None

PATIENT
  Age: 65 Year
  Sex: Female
  Weight: 68 kg

DRUGS (6)
  1. CYCLOPHOSPHAMIDE [Suspect]
     Active Substance: CYCLOPHOSPHAMIDE
     Indication: Breast cancer female
     Dosage: 0.8G, ONE TIME IN ONE DAY, DILUTED WITH 500ML, 0.9% SODIUM CHLORIDE, MICROPUMP, INTRA-PUMP INJECTION
     Route: 050
     Dates: start: 20231017, end: 20231017
  2. SODIUM CHLORIDE [Suspect]
     Active Substance: SODIUM CHLORIDE
     Indication: Medication dilution
     Dosage: 250ML, ONE TIME IN ONE DAY, USED TO DILUTE 120MG DOCETAXEL, MICROPUMP, INTRA-PUMP INJECTION,SECOND C
     Route: 050
     Dates: start: 20231017, end: 20231017
  3. SODIUM CHLORIDE [Suspect]
     Active Substance: SODIUM CHLORIDE
     Dosage: 250ML, ONE TIME IN ONE DAY, USED TO DILUTE 80MG  DOXORUBICIN HYDROCHLORIDE MICROPUMP, INTRA-PUMP INJ
     Route: 050
     Dates: start: 20231017, end: 20231017
  4. SODIUM CHLORIDE [Suspect]
     Active Substance: SODIUM CHLORIDE
     Dosage: 500ML, ONE TIME IN ONE DAY, USED TO DILUTE 0.8G  CYCLOPHOSPHAMIDE, MICROPUMP, INTRA-PUMP INJECTION,S
     Route: 050
     Dates: start: 20231017, end: 20231017
  5. DOCETAXEL [Suspect]
     Active Substance: DOCETAXEL\DOCETAXEL ANHYDROUS
     Indication: Breast cancer female
     Dosage: 120MG, ONE TIME IN ONE DAY, DILUTED WITH 250ML, 0.9% SODIUM CHLORIDE, MICROPUMP, INTRA-PUMP INJECTIO
     Route: 050
     Dates: start: 20231017, end: 20231017
  6. DOXORUBICIN HYDROCHLORIDE [Suspect]
     Active Substance: DOXORUBICIN HYDROCHLORIDE
     Indication: Breast cancer female
     Dosage: 80MG, ONE TIME IN ONE DAY, DILUTED WITH 250ML, 0.9% SODIUM CHLORIDE MICROPUMP, INTRA-PUMP INJECTION,
     Route: 050
     Dates: start: 20231017, end: 20231017

REACTIONS (2)
  - Myelosuppression [Recovering/Resolving]
  - White blood cell count decreased [Unknown]

NARRATIVE: CASE EVENT DATE: 20231019
